FAERS Safety Report 5313370-7 (Version None)
Quarter: 2007Q2

REPORT INFORMATION
  Report Type: 
  Country: None (occurrence: None)
  Receive Date: 20070501
  Receipt Date: 20070424
  Transmission Date: 20071010
  Serious: Yes (Death, Other)
  Sender: FDA-Public Use
  Company Number: US-NOVOPROD-263185

PATIENT
  Sex: Male
  Weight: 87 kg

DRUGS (6)
  1. NOVOSEVEN [Suspect]
     Indication: TRAUMATIC BRAIN INJURY
     Dates: start: 20060802
  2. NOVOSEVEN [Suspect]
     Indication: SUBDURAL HAEMATOMA
  3. NOVOSEVEN [Suspect]
     Indication: SUBARACHNOID HAEMORRHAGE
  4. PLACEBO [Suspect]
     Indication: HEAD INJURY
     Dates: start: 20060802
  5. PLACEBO [Suspect]
     Indication: SUBDURAL HAEMATOMA
  6. PLACEBO [Suspect]
     Indication: SUBARACHNOID HAEMORRHAGE

REACTIONS (2)
  - CONCOMITANT DISEASE PROGRESSION [None]
  - WRONG DRUG ADMINISTERED [None]
